FAERS Safety Report 4763156-7 (Version None)
Quarter: 2005Q3

REPORT INFORMATION
  Report Type: 
  Country: None (occurrence: None)
  Receive Date: 20050901
  Receipt Date: 20050622
  Transmission Date: 20060218
  Serious: Yes (Other)
  Sender: FDA-Public Use
  Company Number: 2005BH000274

PATIENT
  Age: 68 Year
  Sex: Male

DRUGS (8)
  1. CIPRO [Suspect]
     Indication: DRUG USE FOR UNKNOWN INDICATION
     Dosage: 250 MG; ONCE
  2. GLYBURIDE [Concomitant]
  3. FUROSEMIDE [Concomitant]
  4. WARFARIN [Concomitant]
  5. FOSINOPRIL SODIUM [Concomitant]
  6. CLOPIDOGREL [Concomitant]
  7. LOVASTATIN [Concomitant]
  8. METROPROLOL [Concomitant]

REACTIONS (13)
  - BLOOD CHLORIDE DECREASED [None]
  - BLOOD CREATININE INCREASED [None]
  - BODY TEMPERATURE DECREASED [None]
  - CONFUSIONAL STATE [None]
  - DRUG INTERACTION [None]
  - HAEMATOCRIT DECREASED [None]
  - HEART RATE DECREASED [None]
  - HYPERHIDROSIS [None]
  - HYPOGLYCAEMIA [None]
  - INTERNATIONAL NORMALISED RATIO INCREASED [None]
  - LOSS OF CONSCIOUSNESS [None]
  - MENTAL STATUS CHANGES [None]
  - TREMOR [None]
